FAERS Safety Report 10081515 (Version 1)
Quarter: 2014Q2

REPORT INFORMATION
  Report Type: Spontaneous
  Country: US (occurrence: None)
  Receive Date: 20140415
  Receipt Date: 20140415
  Transmission Date: 20141212
  Serious: Yes (Other)
  Sender: FDA-Public Use
  Company Number: None

PATIENT
  Age: 63 Year
  Sex: Female

DRUGS (1)
  1. HUMIRA 140 MG [Suspect]
     Indication: RHEUMATOID ARTHRITIS
     Dosage: 40MG EVERY OTHER WEEK, SUBCUTANEOUS
     Route: 058
     Dates: start: 201402, end: 20140328

REACTIONS (3)
  - Rash generalised [None]
  - Pruritus [None]
  - Dry skin [None]
